FAERS Safety Report 23438638 (Version 1)
Quarter: 2024Q1

REPORT INFORMATION
  Report Type: Spontaneous
  Country: US (occurrence: None)
  Receive Date: 20240124
  Receipt Date: 20240124
  Transmission Date: 20240410
  Serious: No
  Sender: FDA-Public Use
  Company Number: None

PATIENT
  Age: 69 Year
  Sex: Male
  Weight: 60.3 kg

DRUGS (7)
  1. PAXLOVID [Suspect]
     Active Substance: NIRMATRELVIR\RITONAVIR
     Indication: SARS-CoV-2 test positive
     Dosage: OTHER QUANTITY : 3 TABLET(S);?FREQUENCY : TWICE A DAY;?
     Route: 048
     Dates: start: 20240116, end: 20240120
  2. Rxs for high blood pressure [Concomitant]
  3. Rx for high cholesterol [Concomitant]
  4. Rx for enlarged prostate [Concomitant]
  5. Men^s 50+ multivitamin with minerals [Concomitant]
  6. IRON [Concomitant]
  7. VITAMIN D [Concomitant]
     Active Substance: VITAMIN D NOS

REACTIONS (4)
  - Dysgeusia [None]
  - Pain in extremity [None]
  - Myalgia [None]
  - Middle insomnia [None]

NARRATIVE: CASE EVENT DATE: 20240117
